FAERS Safety Report 9848108 (Version 1)
Quarter: 2014Q1

REPORT INFORMATION
  Report Type: Spontaneous
  Country: US (occurrence: None)
  Receive Date: 20140117
  Receipt Date: 20140117
  Transmission Date: 20141002
  Serious: Yes (Other)
  Sender: FDA-Public Use
  Company Number: B0960320A

PATIENT
  Age: 18 Year
  Sex: Male

DRUGS (11)
  1. DIAZEPAM (DIAZEPAM) [Suspect]
     Route: 048
  2. PAROXETINE HYDROCHLORIDE [Suspect]
     Route: 048
  3. DIPHENHYDRAMINE (DIPHENHYDRAMINE) [Suspect]
     Route: 048
  4. DEXTROMETHORPHAN HBR [Suspect]
     Route: 048
  5. PARACETAMOL [Suspect]
     Route: 048
  6. ETHANOL [Suspect]
     Route: 048
  7. DOXEPIN (DOXEPIN) (DOXEPIN) [Suspect]
  8. CITALOPRAM (CITALOPRAM) [Suspect]
  9. CODEINE (CODEINE) [Suspect]
  10. HYDROCODONE (HYDROCODONE) [Suspect]
  11. DIAMORPHINE HYDROCHLORIDE [Suspect]

REACTIONS (1)
  - Intentional drug misuse [None]
